FAERS Safety Report 8919293 (Version 1)
Quarter: 2012Q4

REPORT INFORMATION
  Report Type: 
  Country: US (occurrence: US)
  Receive Date: 20121121
  Receipt Date: 20121121
  Transmission Date: 20130627
  Serious: Yes (Other)
  Sender: FDA-Public Use
  Company Number: US-PFIZER INC-2012289768

PATIENT
  Age: 42 Year
  Sex: Male
  Weight: 106 kg

DRUGS (4)
  1. LYRICA [Suspect]
     Indication: NEUROPATHY
     Dosage: UNK, three times a day
     Dates: start: 20120823
  2. LORTAB [Suspect]
     Indication: PAIN
     Dosage: at a dose of ^7.5 mg^ two times a day
     Dates: start: 2012
  3. METHADONE [Suspect]
     Dosage: 10 mg, 3x/day
     Dates: start: 2012
  4. LOPRESSOR [Concomitant]
     Indication: BLOOD PRESSURE HIGH
     Dosage: UNK

REACTIONS (4)
  - Weight increased [Not Recovered/Not Resolved]
  - Pain [Not Recovered/Not Resolved]
  - Paraesthesia [Not Recovered/Not Resolved]
  - Drug ineffective [Unknown]
